FAERS Safety Report 19789757 (Version 1)
Quarter: 2021Q3

REPORT INFORMATION
  Report Type: Spontaneous
  Country: US (occurrence: US)
  Receive Date: 20210904
  Receipt Date: 20210904
  Transmission Date: 20211014
  Serious: No
  Sender: FDA-Public Use
  Company Number: US-TEVA-2021-US-1941707

PATIENT
  Age: 75 Year
  Sex: Male

DRUGS (2)
  1. LIDOCAINE. [Suspect]
     Active Substance: LIDOCAINE
     Indication: GROIN PAIN
     Route: 062
     Dates: end: 2020
  2. LIDOCAINE. [Suspect]
     Active Substance: LIDOCAINE
     Indication: PELVIC PAIN

REACTIONS (3)
  - Product use in unapproved indication [Unknown]
  - Hyperhidrosis [Unknown]
  - Product adhesion issue [Unknown]
